FAERS Safety Report 25716474 (Version 1)
Quarter: 2025Q3

REPORT INFORMATION
  Report Type: Spontaneous
  Country: EU (occurrence: EU)
  Receive Date: 20250822
  Receipt Date: 20250822
  Transmission Date: 20251020
  Serious: Yes (Other)
  Sender: MYLAN
  Company Number: EU-MYLANLABS-2025M1070593

PATIENT
  Age: 74 Year
  Sex: Female

DRUGS (16)
  1. LYRICA [Suspect]
     Active Substance: PREGABALIN
     Indication: Neuralgia
     Dosage: 2 DOSAGE FORM, BID (2 CAPSULES IN THE MORNING AND 2 AT NIGHT)
     Dates: start: 202506
  2. LYRICA [Suspect]
     Active Substance: PREGABALIN
     Dosage: 2 DOSAGE FORM, BID (2 CAPSULES IN THE MORNING AND 2 AT NIGHT)
     Dates: start: 202506
  3. LYRICA [Suspect]
     Active Substance: PREGABALIN
     Dosage: 2 DOSAGE FORM, BID (2 CAPSULES IN THE MORNING AND 2 AT NIGHT)
     Route: 065
     Dates: start: 202506
  4. LYRICA [Suspect]
     Active Substance: PREGABALIN
     Dosage: 2 DOSAGE FORM, BID (2 CAPSULES IN THE MORNING AND 2 AT NIGHT)
     Route: 065
     Dates: start: 202506
  5. LYRICA [Suspect]
     Active Substance: PREGABALIN
  6. LYRICA [Suspect]
     Active Substance: PREGABALIN
  7. LYRICA [Suspect]
     Active Substance: PREGABALIN
     Route: 065
  8. LYRICA [Suspect]
     Active Substance: PREGABALIN
     Route: 065
  9. LYRICA [Suspect]
     Active Substance: PREGABALIN
     Indication: Neuralgia
     Dosage: 2 DOSAGE FORM, PM (2 CAPSULES AT NIGHT)
     Dates: start: 202507
  10. LYRICA [Suspect]
     Active Substance: PREGABALIN
     Dosage: 2 DOSAGE FORM, PM (2 CAPSULES AT NIGHT)
     Route: 065
     Dates: start: 202507
  11. LYRICA [Suspect]
     Active Substance: PREGABALIN
     Dosage: 2 DOSAGE FORM, PM (2 CAPSULES AT NIGHT)
     Route: 065
     Dates: start: 202507
  12. LYRICA [Suspect]
     Active Substance: PREGABALIN
     Dosage: 2 DOSAGE FORM, PM (2 CAPSULES AT NIGHT)
     Dates: start: 202507
  13. Nubit [Concomitant]
  14. Nubit [Concomitant]
     Route: 065
  15. Nubit [Concomitant]
     Route: 065
  16. Nubit [Concomitant]

REACTIONS (6)
  - Hallucination [Not Recovered/Not Resolved]
  - Emotional disorder [Not Recovered/Not Resolved]
  - Cognitive disorder [Not Recovered/Not Resolved]
  - Amnesia [Not Recovered/Not Resolved]
  - Off label use [Unknown]
  - Intentional product misuse [Unknown]

NARRATIVE: CASE EVENT DATE: 20250601
